FAERS Safety Report 23520822 (Version 1)
Quarter: 2024Q1

REPORT INFORMATION
  Report Type: Spontaneous
  Country: FR (occurrence: FR)
  Receive Date: 20240214
  Receipt Date: 20240214
  Transmission Date: 20240410
  Serious: Yes (Hospitalization, Other)
  Sender: FDA-Public Use
  Company Number: None

PATIENT
  Age: 85 Year
  Sex: Male
  Weight: 60 kg

DRUGS (3)
  1. LEVOFLOXACIN [Suspect]
     Active Substance: LEVOFLOXACIN
     Indication: Device related infection
     Dosage: 500 MG, QD
     Route: 048
     Dates: start: 20231115, end: 20231227
  2. RIFAMPIN [Suspect]
     Active Substance: RIFAMPIN
     Indication: Device related infection
     Dosage: 900 MG QD
     Route: 048
     Dates: start: 20231107, end: 20231220
  3. MEROPENEM [Suspect]
     Active Substance: MEROPENEM
     Indication: Device related infection
     Dosage: 9 G QD
     Route: 042
     Dates: start: 20231106, end: 20231227

REACTIONS (2)
  - Rash maculo-papular [Recovered/Resolved]
  - Eosinophilia [Recovered/Resolved]
